FAERS Safety Report 4622911-4 (Version None)
Quarter: 2005Q1

REPORT INFORMATION
  Report Type: 
  Country: None (occurrence: None)
  Receive Date: 20050329
  Receipt Date: 20050311
  Transmission Date: 20050727
  Serious: Yes (Life-Threatening)
  Sender: FDA-Public Use
  Company Number: 10568

PATIENT
  Age: 38 Year
  Sex: Male

DRUGS (4)
  1. METHOTREXATE [Suspect]
     Indication: PSORIASIS
     Dosage: 10 MG WEEKLY PO
     Route: 048
     Dates: end: 20041220
  2. ROFECOXIB [Concomitant]
  3. BETAMETHASONE [Concomitant]
  4. CALCIPOTRIOL [Concomitant]

REACTIONS (4)
  - ABDOMINAL PAIN [None]
  - COLITIS [None]
  - DIARRHOEA [None]
  - RECTAL HAEMORRHAGE [None]
